FAERS Safety Report 13138066 (Version 1)
Quarter: 2017Q1

REPORT INFORMATION
  Report Type: Spontaneous
  Country: US (occurrence: US)
  Receive Date: 20170123
  Receipt Date: 20170123
  Transmission Date: 20170428
  Serious: No
  Sender: FDA-Public Use
  Company Number: US-UNITED THERAPEUTICS-UNT-2016-008352

PATIENT
  Age: 68 Year
  Sex: Female
  Weight: 77.98 kg

DRUGS (3)
  1. ADCIRCA [Concomitant]
     Active Substance: TADALAFIL
     Indication: PRODUCT USED FOR UNKNOWN INDICATION
  2. XARELTO [Concomitant]
     Active Substance: RIVAROXABAN
     Indication: PRODUCT USED FOR UNKNOWN INDICATION
  3. TYVASO [Suspect]
     Active Substance: TREPROSTINIL
     Indication: PULMONARY HYPERTENSION
     Dosage: 18-54 ?G, QID
     Dates: start: 20160504, end: 20160609

REACTIONS (9)
  - Fatigue [Unknown]
  - Hypotension [Unknown]
  - Abdominal pain upper [Unknown]
  - Cough [Unknown]
  - Flushing [Unknown]
  - Activities of daily living impaired [Unknown]
  - Chest discomfort [Recovered/Resolved]
  - Headache [Unknown]
  - Throat irritation [Unknown]

NARRATIVE: CASE EVENT DATE: 201605
